FAERS Safety Report 4978984-2 (Version None)
Quarter: 2006Q2

REPORT INFORMATION
  Report Type: 
  Country: None (occurrence: None)
  Receive Date: 20060417
  Receipt Date: 20060412
  Transmission Date: 20061013
  Serious: Yes (Other)
  Sender: FDA-Public Use
  Company Number: 144337USA

PATIENT
  Age: 55 Year
  Sex: Female

DRUGS (3)
  1. GLATIRAMER ACETATE [Suspect]
     Indication: MULTIPLE SCLEROSIS
     Dosage: SUBCUTANEOUS
     Route: 058
     Dates: start: 20050614, end: 20051212
  2. LORAZEPAM [Concomitant]
  3. NU-TRIAZIDE [Concomitant]

REACTIONS (1)
  - SYSTEMIC LUPUS ERYTHEMATOSUS [None]
